FAERS Safety Report 20167478 (Version 2)
Quarter: 2021Q4

REPORT INFORMATION
  Report Type: Spontaneous
  Country: US (occurrence: US)
  Receive Date: 20211209
  Receipt Date: 20211224
  Transmission Date: 20220304
  Serious: Yes (Hospitalization, Other)
  Sender: FDA-Public Use
  Company Number: US-TEVA-2021-US-1984936

PATIENT
  Age: 50 Year
  Sex: Male

DRUGS (15)
  1. MYCOPHENOLATE MOFETIL [Suspect]
     Active Substance: MYCOPHENOLATE MOFETIL
     Indication: Immunosuppressant drug therapy
     Dosage: 2000 MILLIGRAM DAILY; DOSE REDUCED TO 500MG
     Route: 065
  2. MYCOPHENOLATE MOFETIL [Suspect]
     Active Substance: MYCOPHENOLATE MOFETIL
     Dosage: 1000 MILLIGRAM DAILY;
     Route: 065
  3. PREDNISONE [Suspect]
     Active Substance: PREDNISONE
     Indication: Immunosuppressant drug therapy
     Dosage: 10 MILLIGRAM DAILY;
     Route: 065
  4. PREDNISONE [Suspect]
     Active Substance: PREDNISONE
     Indication: Mediastinitis
     Dosage: 5 MILLIGRAM DAILY; LATER, HIGH-DOSE PREDNISONE WERE GIVEN WITH AMPICILLIN FOR POSSIBLE MEDIASTINITIS
     Route: 065
  5. PREDNISONE [Suspect]
     Active Substance: PREDNISONE
     Dosage: 20 MILLIGRAM DAILY;
     Route: 065
  6. PREDNISONE [Suspect]
     Active Substance: PREDNISONE
     Dosage: 30 MILLIGRAM DAILY; WITH 2 WEEK TAPERED
     Route: 048
  7. TACROLIMUS [Suspect]
     Active Substance: TACROLIMUS
     Indication: Immunosuppressant drug therapy
     Dosage: BLOOD CONCENTRATION TROUGH GOALS OF 8 TO 10NG/ML
     Route: 065
  8. BELATACEPT [Suspect]
     Active Substance: BELATACEPT
     Indication: Immunosuppressant drug therapy
     Dosage: RECEIVED 5MG/KG EVERY 2 WEEKS FOR 6DOSES;
     Route: 065
     Dates: start: 202006
  9. BELATACEPT [Suspect]
     Active Substance: BELATACEPT
     Dosage: LATER, MONTHLY AND THEREAFTER ACCORDING TO PREVIOUSLY PUBLISHED EXPERIENCE
     Route: 065
  10. THYMOCYTE IMMUNE GLOBULIN NOS [Suspect]
     Active Substance: THYMOCYTE IMMUNE GLOBULIN NOS
     Indication: Mediastinitis
     Route: 065
  11. SOLU-MEDROL [Concomitant]
     Active Substance: METHYLPREDNISOLONE SODIUM SUCCINATE
     Indication: Immunosuppressant drug therapy
     Route: 042
  12. BASILIXIMAB [Concomitant]
     Active Substance: BASILIXIMAB
     Indication: Immunosuppressant drug therapy
     Route: 042
  13. POSACONAZOLE [Concomitant]
     Active Substance: POSACONAZOLE
     Indication: Antifungal prophylaxis
     Route: 065
  14. AMPICILLIN [Concomitant]
     Active Substance: AMPICILLIN
     Indication: Mediastinitis
     Route: 042
  15. METHYLPREDNISOLONE [Concomitant]
     Active Substance: METHYLPREDNISOLONE
     Indication: Immunosuppressant drug therapy
     Dosage: 500 MILLIGRAM DAILY;
     Route: 042

REACTIONS (4)
  - Diffuse mesangial sclerosis [Unknown]
  - Drug ineffective [Unknown]
  - Leukopenia [Unknown]
  - Renal failure [Unknown]
